FAERS Safety Report 9221501 (Version 1)
Quarter: 2013Q1

REPORT INFORMATION
  Report Type: Spontaneous
  Country: US (occurrence: None)
  Receive Date: 20120831
  Receipt Date: 20120831
  Transmission Date: 20140127
  Serious: No
  Sender: FDA-Public Use
  Company Number: 1000031129

PATIENT
  Age: 79 Year
  Sex: Male

DRUGS (9)
  1. DALIRESP [Suspect]
     Indication: BRONCHITIS CHRONIC
     Route: 048
     Dates: start: 201205, end: 201205
  2. DALIRESP [Suspect]
     Indication: BRONCHITIS CHRONIC
     Route: 048
     Dates: start: 201205, end: 201205
  3. ZITHROMAX (AZITHROMYCIN) (AZITHROMYCIN) [Concomitant]
  4. NIFEDIPINE (NIFEDIPINE) (NIFEDIPINE) [Concomitant]
  5. LISINOPRIL (LISINOPRIL) (LISINOPRIL) [Concomitant]
  6. NIACIN (NICOTINIC ACID) (NICOTINIC ACID) [Concomitant]
  7. ASPIRIN (ACETYLSALICYLIC ACID) (ACETYLSALICYLIC ACID) [Concomitant]
  8. OMEPRAZOLE (OMEPRAZOLE) (OMEPRAZOLE) [Concomitant]
  9. GUAIFENESIN (GUAIFENESIN) (GUAIFENESIN) [Concomitant]

REACTIONS (5)
  - Fatigue [None]
  - Malaise [None]
  - Dyspnoea [None]
  - Increased bronchial secretion [None]
  - Anxiety [None]
